FAERS Safety Report 9475810 (Version 1)
Quarter: 2013Q3

REPORT INFORMATION
  Report Type: Spontaneous
  Country: US (occurrence: US)
  Receive Date: 20130826
  Receipt Date: 20130826
  Transmission Date: 20140515
  Serious: No
  Sender: FDA-Public Use
  Company Number: US-PFIZER INC-2013244322

PATIENT
  Age: 49 Year
  Sex: Female
  Weight: 56.69 kg

DRUGS (7)
  1. LYRICA [Suspect]
     Indication: PARTIAL SEIZURES
     Dosage: 75 MG, 2X/DAY
  2. DEPAKOTE [Suspect]
     Dosage: UNK
  3. TEGRETOL [Suspect]
     Dosage: UNK
  4. ZONEGRAN [Suspect]
     Dosage: UNK
  5. ZONISAMIDE [Concomitant]
     Indication: EPILEPSY
     Dosage: 100 MG, 6X/DAY
  6. DIVALPROEX SODIUM [Concomitant]
     Indication: EPILEPSY
     Dosage: 250 MG, 2X/DAY
  7. CARBAMAZEPINE [Concomitant]
     Indication: EPILEPSY
     Dosage: 200 MG, 2X/DAY

REACTIONS (4)
  - Vision blurred [Unknown]
  - Hypoaesthesia [Unknown]
  - Feeling drunk [Unknown]
  - Activities of daily living impaired [Unknown]
